FAERS Safety Report 5468353-3 (Version None)
Quarter: 2007Q3

REPORT INFORMATION
  Report Type: 
  Country: None (occurrence: None)
  Receive Date: 20070926
  Receipt Date: 20070925
  Transmission Date: 20080115
  Serious: Yes (Other)
  Sender: FDA-Public Use
  Company Number: B0484880A

PATIENT
  Age: 38 Year
  Sex: Male
  Weight: 74 kg

DRUGS (2)
  1. SUMATRIPTAN SUCCINATE [Suspect]
     Indication: CLUSTER HEADACHE
     Dosage: .5ML UNKNOWN
     Route: 058
     Dates: start: 20070613, end: 20070624
  2. PREDNISOLONE [Concomitant]
     Indication: CLUSTER HEADACHE
     Route: 048
     Dates: start: 20070613, end: 20070618

REACTIONS (2)
  - CRANIAL NERVE DISORDER [None]
  - DIPLOPIA [None]
